FAERS Safety Report 9821087 (Version 1)
Quarter: 2014Q1

REPORT INFORMATION
  Report Type: Report from Study
  Country: US (occurrence: US)
  Receive Date: 20140116
  Receipt Date: 20140116
  Transmission Date: 20141002
  Serious: Yes (Other)
  Sender: FDA-Public Use
  Company Number: PHEH2014US001031

PATIENT
  Sex: Male

DRUGS (1)
  1. SANDIMMUN [Suspect]
     Dosage: 100 MG, BID
     Route: 048

REACTIONS (1)
  - Transplant rejection [Unknown]
